FAERS Safety Report 4789434-3 (Version None)
Quarter: 2005Q4

REPORT INFORMATION
  Report Type: 
  Country: None (occurrence: None)
  Receive Date: 20051004
  Receipt Date: 20050920
  Transmission Date: 20060501
  Serious: Yes (Hospitalization, Other)
  Sender: FDA-Public Use
  Company Number: USA0507103852

PATIENT
  Age: 88 Year
  Sex: Male

DRUGS (10)
  1. FORTEO [Suspect]
     Indication: BONE DISORDER
     Dosage: 20 UG/D DAY
     Dates: start: 20050310
  2. ZOCOR [Concomitant]
  3. FLOMAX [Concomitant]
  4. ASPIRIN [Concomitant]
  5. PEPCID [Concomitant]
  6. SYNTHROID [Concomitant]
  7. MULTI-VITAMIN [Concomitant]
  8. AMBIEN [Concomitant]
  9. VOLTAREN /SCH/ (DICLOFENAC POTASSIUM) [Concomitant]
  10. ACIPHEX [Concomitant]

REACTIONS (19)
  - ACUTE RESPIRATORY DISTRESS SYNDROME [None]
  - ANAEMIA [None]
  - BLOOD DISORDER [None]
  - CELLULITIS [None]
  - DIALYSIS [None]
  - ERYTHEMA [None]
  - EXCORIATION [None]
  - GALLBLADDER PERFORATION [None]
  - HYPERLIPIDAEMIA [None]
  - HYPOTENSION [None]
  - INJURY [None]
  - PAIN [None]
  - PHARMACEUTICAL PRODUCT COMPLAINT [None]
  - POISONING [None]
  - PYREXIA [None]
  - RENAL FAILURE [None]
  - SEPSIS [None]
  - SKIN LACERATION [None]
  - SWELLING [None]
